FAERS Safety Report 11699146 (Version 2)
Quarter: 2015Q4

REPORT INFORMATION
  Report Type: Spontaneous
  Country: TR (occurrence: TR)
  Receive Date: 20151104
  Receipt Date: 20151104
  Transmission Date: 20160304
  Serious: Yes (Other)
  Sender: FDA-Public Use
  Company Number: TR-ANTARES PHARMA, INC.-2015-LIT-ME-0073

PATIENT
  Age: 71 Year
  Sex: Female
  Weight: 50 kg

DRUGS (6)
  1. ALENDRONATE [Suspect]
     Active Substance: ALENDRONATE SODIUM
  2. PREDNISONE. [Suspect]
     Active Substance: PREDNISONE
  3. LEFLUNOMIDE. [Concomitant]
     Active Substance: LEFLUNOMIDE
  4. CALCIUM [Concomitant]
     Active Substance: CALCIUM
  5. METHOTREXATE [Suspect]
     Active Substance: METHOTREXATE
  6. VITAMIN D                          /00107901/ [Concomitant]
     Active Substance: ERGOCALCIFEROL

REACTIONS (6)
  - Trismus [None]
  - Pain [None]
  - Pyrexia [None]
  - Osteonecrosis of jaw [None]
  - Abscess jaw [None]
  - Headache [None]
